FAERS Safety Report 4577872-3 (Version None)
Quarter: 2005Q1

REPORT INFORMATION
  Report Type: 
  Country: None (occurrence: None)
  Receive Date: 20050127
  Receipt Date: 20040913
  Transmission Date: 20050727
  Serious: No
  Sender: FDA-Public Use
  Company Number: USA040876820

PATIENT
  Age: 7 Year
  Sex: Male
  Weight: 24 kg

DRUGS (2)
  1. STRATTERA [Suspect]
     Indication: ATTENTION DEFICIT/HYPERACTIVITY DISORDER
     Dosage: 25 MG/L IN THE MORNING
     Dates: start: 20040819
  2. ADDERALL 10 [Concomitant]

REACTIONS (5)
  - AGITATION [None]
  - ANXIETY [None]
  - FEAR [None]
  - INSOMNIA [None]
  - NIGHTMARE [None]
